FAERS Safety Report 8008912-7 (Version None)
Quarter: 2011Q4

REPORT INFORMATION
  Report Type: 
  Country: None (occurrence: None)
  Receive Date: 20111227
  Receipt Date: 20111220
  Transmission Date: 20120403
  Serious: Yes (Hospitalization)
  Sender: FDA-Public Use
  Company Number: US-ROCHE-1024402

PATIENT
  Age: 39 Year
  Sex: Female
  Weight: 72 kg

DRUGS (3)
  1. CARBOPLATIN [Suspect]
     Indication: OVARIAN EPITHELIAL CANCER
     Dosage: 6 AUC, ON DAY 1,LAST ADMINISTERED: 23-AUG-2011
     Route: 033
     Dates: start: 20110405
  2. AVASTIN [Suspect]
     Indication: OVARIAN EPITHELIAL CANCER
     Dosage: OVER 30-90 MIN ON DAY 1, DELAYED
     Route: 042
     Dates: start: 20110405
  3. PACLITAXEL [Suspect]
     Indication: OVARIAN EPITHELIAL CANCER
     Dosage: OVER 1 HR ON DAYS 1, 8 + 15, LAST ADMINISTERED: 23-AUG-2011
     Route: 042
     Dates: start: 20110405

REACTIONS (3)
  - ABDOMINAL PAIN [None]
  - PROCTALGIA [None]
  - PYREXIA [None]
